FAERS Safety Report 7909058-6 (Version None)
Quarter: 2011Q4

REPORT INFORMATION
  Report Type: 
  Country: None (occurrence: None)
  Receive Date: 20111111
  Receipt Date: 20111109
  Transmission Date: 20120403
  Serious: Yes (Death, Hospitalization)
  Sender: FDA-Public Use
  Company Number: NZ-B.I. PHARMACEUTICALS,INC./RIDGEFIELD-2011-AU-01979AU

PATIENT
  Sex: Female

DRUGS (9)
  1. RISPERIDONE [Concomitant]
     Dosage: 1 MG
  2. METOPROLOL TARTRATE [Concomitant]
     Dosage: 95 MG
  3. CITALOPRAM HYDROBROMIDE [Concomitant]
     Dosage: 20 MG
  4. SIMVASTATIN [Concomitant]
     Dosage: 40 MG
  5. PRADAXA [Suspect]
     Indication: ATRIAL FIBRILLATION
     Dosage: 220 MG
     Dates: start: 20110701
  6. PRADAXA [Suspect]
     Indication: CEREBROVASCULAR ACCIDENT
  7. PRILOSEC [Concomitant]
     Dosage: 20 MG
  8. FUROSEMIDE [Concomitant]
     Dosage: 20 MG
  9. CANDESARTAN CILEXETIL [Concomitant]
     Dosage: 8 MG

REACTIONS (3)
  - DEPRESSED LEVEL OF CONSCIOUSNESS [None]
  - CEREBROVASCULAR ACCIDENT [None]
  - CEREBRAL INFARCTION [None]
